FAERS Safety Report 24876106 (Version 2)
Quarter: 2025Q1

REPORT INFORMATION
  Report Type: Report from Study
  Country: BR (occurrence: BR)
  Receive Date: 20250123
  Receipt Date: 20250131
  Transmission Date: 20250409
  Serious: Yes (Disabling, Other)
  Sender: CELLTRION
  Company Number: BR-CELLTRION INC.-2025BR001708

PATIENT

DRUGS (1)
  1. INFLIXIMAB-DYYB [Suspect]
     Active Substance: INFLIXIMAB-DYYB
     Indication: Crohn^s disease
     Route: 042
     Dates: start: 2021

REACTIONS (5)
  - Crohn^s disease [Unknown]
  - Pain [Unknown]
  - Gait disturbance [Unknown]
  - Product substitution issue [Unknown]
  - Drug effect less than expected [Unknown]
